FAERS Safety Report 8363344-7 (Version None)
Quarter: 2012Q2

REPORT INFORMATION
  Report Type: 
  Country: None (occurrence: None)
  Receive Date: 20120516
  Receipt Date: 20111213
  Transmission Date: 20120825
  Serious: No
  Sender: FDA-Public Use
  Company Number: US-ALEXION-A201101888

PATIENT
  Sex: Male
  Weight: 77.098 kg

DRUGS (6)
  1. PRILOSEC [Concomitant]
     Dosage: 200 MG, QD
  2. SULFAMETHOXAZOLE AND TRIMETHOPRIM [Concomitant]
     Dosage: 800 MG/ 160 MG, BID 2XQWK
  3. SOLIRIS [Suspect]
     Indication: PAROXYSMAL NOCTURNAL HAEMOGLOBINURIA
     Dosage: 600 MG, UNK
     Route: 042
     Dates: start: 20110920, end: 20110101
  4. SOLIRIS [Suspect]
     Dosage: 900 MG, UNK
     Route: 042
     Dates: start: 20111018
  5. ATENOLOL [Concomitant]
     Dosage: 50 MG, QD
  6. FOSAMAX [Concomitant]
     Dosage: 70 MG, QW

REACTIONS (5)
  - DRY SKIN [None]
  - OROPHARYNGEAL PAIN [None]
  - EYE PRURITUS [None]
  - NASAL DISCOMFORT [None]
  - HYPERSENSITIVITY [None]
